FAERS Safety Report 5291917-7 (Version None)
Quarter: 2007Q2

REPORT INFORMATION
  Report Type: 
  Country: None (occurrence: None)
  Receive Date: 20070410
  Receipt Date: 20070328
  Transmission Date: 20071010
  Serious: Yes (Other)
  Sender: FDA-Public Use
  Company Number: PHBS2007BR05750

PATIENT
  Age: 63 Year
  Sex: Female
  Weight: 80 kg

DRUGS (10)
  1. CARDIZEM [Concomitant]
     Indication: HYPERTENSION
     Dosage: 90 MG, BID
     Route: 048
     Dates: start: 19800101
  2. METFORMIN HCL [Concomitant]
     Indication: DIABETES MELLITUS
     Dosage: 500 MG, BID
     Route: 048
  3. FUROSEMIDE [Concomitant]
     Indication: HYPERTENSION
     Route: 048
  4. AMILORIDE HYDROCHLORIDE [Concomitant]
     Indication: HYPERTENSION
     Route: 048
  5. FLUOXETINE [Concomitant]
     Indication: HYPERTENSION
     Dosage: 10 MG, QD
     Route: 048
  6. OROXADIN [Concomitant]
     Indication: DIABETES MELLITUS
     Route: 048
  7. COZAAR [Concomitant]
     Indication: DIABETES MELLITUS
     Dosage: 50 MG, QD
     Route: 048
  8. PARIET [Concomitant]
     Dosage: 10 MG, QD
     Route: 048
  9. CONDROFLEX [Concomitant]
     Route: 048
  10. APRESOLINE [Suspect]
     Indication: HYPERTENSION
     Dosage: 25 MG, QD
     Route: 048

REACTIONS (2)
  - HYPERGLYCAEMIA [None]
  - VARICOSE VEIN OPERATION [None]
